FAERS Safety Report 6771613-7 (Version None)
Quarter: 2010Q2

REPORT INFORMATION
  Report Type: 
  Country: None (occurrence: None)
  Receive Date: 20100616
  Receipt Date: 20100603
  Transmission Date: 20101027
  Serious: Yes (Other)
  Sender: FDA-Public Use
  Company Number: PHHY2010US14181

PATIENT
  Sex: Female

DRUGS (5)
  1. GLEEVEC [Suspect]
     Indication: CHRONIC MYELOID LEUKAEMIA
     Dosage: 400 MG DAILY
     Route: 048
     Dates: start: 20090619
  2. GLEEVEC [Suspect]
     Dosage: 400 MG, DAILY WITH FOOD
     Route: 048
     Dates: start: 20090620
  3. EFFEXOR [Concomitant]
  4. VITAMIN E [Concomitant]
  5. MULTI-VITAMINS [Concomitant]

REACTIONS (8)
  - ARTHRITIS [None]
  - BONE PAIN [None]
  - DIARRHOEA [None]
  - MUSCLE SPASMS [None]
  - MYALGIA [None]
  - NERVE COMPRESSION [None]
  - PAIN [None]
  - PERIORBITAL OEDEMA [None]
